FAERS Safety Report 23070436 (Version 2)
Quarter: 2023Q4

REPORT INFORMATION
  Report Type: Spontaneous
  Country: BR (occurrence: BR)
  Receive Date: 20231016
  Receipt Date: 20231120
  Transmission Date: 20240110
  Serious: Yes (Life-Threatening, Hospitalization, Other)
  Sender: FDA-Public Use
  Company Number: BR-002147023-NVSC2023BR156112

PATIENT
  Sex: Male
  Weight: 69 kg

DRUGS (7)
  1. AFINITOR [Suspect]
     Active Substance: EVEROLIMUS
     Indication: Pancreatic carcinoma
     Dosage: 1 DOSAGE FORM, QD (AFTER 6 OR 7 MONTHS)
     Route: 048
     Dates: start: 202301
  2. AFINITOR [Suspect]
     Active Substance: EVEROLIMUS
     Indication: Metastases to liver
     Dosage: 1 DOSAGE FORM, QD, (CX C 30, 17 MAY 2023)
     Route: 048
     Dates: start: 202306, end: 202309
  3. LANREOTIDE [Concomitant]
     Active Substance: LANREOTIDE
     Indication: Product used for unknown indication
     Dosage: 120 MG, QMO
     Route: 065
  4. ENALAPRIL MALEATE [Concomitant]
     Active Substance: ENALAPRIL MALEATE
     Indication: Hypertension
     Dosage: UNK
     Route: 065
  5. TRESIBA [Concomitant]
     Active Substance: INSULIN DEGLUDEC
     Indication: Diabetes mellitus
     Dosage: 1 DOSAGE FORM, TID
     Route: 058
     Dates: start: 2012
  6. GLIFAGE [Concomitant]
     Active Substance: METFORMIN HYDROCHLORIDE
     Indication: Diabetes mellitus
     Dosage: UNK
     Route: 048
     Dates: start: 2012
  7. ELIQUIS [Concomitant]
     Active Substance: APIXABAN
     Indication: Thrombosis
     Dosage: UNK
     Route: 048

REACTIONS (6)
  - Frequent bowel movements [Unknown]
  - Diarrhoea [Unknown]
  - Syncope [Unknown]
  - Weight decreased [Unknown]
  - Pneumonia [Unknown]
  - Gastrointestinal viral infection [Unknown]

NARRATIVE: CASE EVENT DATE: 20230101
